FAERS Safety Report 8296774-2 (Version None)
Quarter: 2012Q2

REPORT INFORMATION
  Report Type: 
  Country: None (occurrence: None)
  Receive Date: 20120418
  Receipt Date: 20120110
  Transmission Date: 20120825
  Serious: No
  Sender: FDA-Public Use
  Company Number: US-ASTRAZENECA-2012SE02161

PATIENT
  Age: 26 Year
  Sex: Female

DRUGS (2)
  1. MYFORTIC [Suspect]
     Route: 065
  2. NEXIUM [Suspect]
     Route: 048

REACTIONS (4)
  - DRUG DOSE OMISSION [None]
  - EPIGASTRIC DISCOMFORT [None]
  - ULCER [None]
  - MALAISE [None]
